FAERS Safety Report 11585321 (Version 1)
Quarter: 2015Q4

REPORT INFORMATION
  Report Type: Spontaneous
  Country: BR (occurrence: BR)
  Receive Date: 20151001
  Receipt Date: 20151001
  Transmission Date: 20160304
  Serious: Yes (Hospitalization)
  Sender: FDA-Public Use
  Company Number: BR-IPCA LABORATORIES LIMITED-IPC201509-000631

PATIENT
  Age: 38 Year
  Sex: Female

DRUGS (1)
  1. WARFARIN [Suspect]
     Active Substance: WARFARIN
     Indication: PULMONARY EMBOLISM

REACTIONS (3)
  - Cerebral ischaemia [Unknown]
  - Cerebral vasoconstriction [Recovered/Resolved]
  - Subarachnoid haemorrhage [Recovering/Resolving]
